FAERS Safety Report 16740539 (Version 2)
Quarter: 2019Q3

REPORT INFORMATION
  Report Type: Spontaneous
  Country: US (occurrence: US)
  Receive Date: 20190826
  Receipt Date: 20190927
  Transmission Date: 20191005
  Serious: No
  Sender: FDA-Public Use
  Company Number: US-PFIZER INC-2019363739

PATIENT
  Age: 73 Year
  Sex: Female
  Weight: 63.49 kg

DRUGS (1)
  1. PREGABALIN. [Suspect]
     Active Substance: PREGABALIN
     Indication: FIBROMYALGIA
     Dosage: UNK
     Dates: end: 20190919

REACTIONS (2)
  - Feeling abnormal [Unknown]
  - Drug ineffective [Unknown]
